FAERS Safety Report 14293477 (Version 1)
Quarter: 2017Q4

REPORT INFORMATION
  Report Type: Spontaneous
  Country: DE (occurrence: DE)
  Receive Date: 20171215
  Receipt Date: 20171215
  Transmission Date: 20180321
  Serious: Yes (Hospitalization)
  Sender: FDA-Public Use
  Company Number: DE-B.I. PHARMACEUTICALS,INC./RIDGEFIELD-2017-BI-005379

PATIENT
  Age: 53 Year
  Sex: Female
  Weight: 53 kg

DRUGS (6)
  1. GILOTRIF [Suspect]
     Active Substance: AFATINIB
     Route: 065
     Dates: start: 20170207, end: 20170327
  2. MARCUMAR [Concomitant]
     Active Substance: PHENPROCOUMON
     Indication: FACTOR V LEIDEN MUTATION
     Dosage: UNIT AND DAILY DOSE: 0.75-1 TABLET
     Route: 065
     Dates: start: 1990
  3. EUTHYROID [Concomitant]
     Indication: AUTOIMMUNE THYROIDITIS
     Route: 065
  4. GILOTRIF [Suspect]
     Active Substance: AFATINIB
     Route: 065
     Dates: start: 20170328
  5. LAVITA [Concomitant]
     Indication: PRODUCT USED FOR UNKNOWN INDICATION
     Route: 065
  6. GILOTRIF [Suspect]
     Active Substance: AFATINIB
     Indication: LUNG ADENOCARCINOMA
     Route: 065
     Dates: start: 20170117, end: 20170129

REACTIONS (21)
  - Fatigue [Not Recovered/Not Resolved]
  - Paronychia [Not Recovered/Not Resolved]
  - Nasal inflammation [Not Recovered/Not Resolved]
  - Dyspnoea [Unknown]
  - Acne [Recovered/Resolved]
  - Epistaxis [Unknown]
  - Malnutrition [Not Recovered/Not Resolved]
  - Skin toxicity [Not Recovered/Not Resolved]
  - Lip injury [Not Recovered/Not Resolved]
  - Fluid intake reduced [Not Recovered/Not Resolved]
  - Vomiting [Recovered/Resolved]
  - Angular cheilitis [Not Recovered/Not Resolved]
  - Dizziness [Not Recovered/Not Resolved]
  - Diarrhoea [Unknown]
  - Rash [Unknown]
  - Aphthous ulcer [Not Recovered/Not Resolved]
  - Eschar [Not Recovered/Not Resolved]
  - Stomatitis [Not Recovered/Not Resolved]
  - Pyrexia [Recovered/Resolved]
  - Mucosal inflammation [Unknown]
  - Skin fissures [Not Recovered/Not Resolved]

NARRATIVE: CASE EVENT DATE: 20170127
